FAERS Safety Report 15813089 (Version 1)
Quarter: 2019Q1

REPORT INFORMATION
  Report Type: Spontaneous
  Country: US (occurrence: US)
  Receive Date: 20190107
  Receipt Date: 20190107
  Transmission Date: 20190417
  Serious: No
  Sender: FDA-Public Use
  Company Number: None

PATIENT
  Age: 74 Year
  Sex: Male

DRUGS (3)
  1. BRIDION [Suspect]
     Active Substance: SUGAMMADEX
  2. ROCURONIUM BROMIDE. [Suspect]
     Active Substance: ROCURONIUM BROMIDE
  3. NARCAN [Suspect]
     Active Substance: NALOXONE HYDROCHLORIDE

REACTIONS (8)
  - Dysarthria [None]
  - Obstructive airways disorder [None]
  - Loss of consciousness [None]
  - Wrong technique in device usage process [None]
  - Muscle twitching [None]
  - Choking [None]
  - Pain [None]
  - Dyspnoea [None]
